FAERS Safety Report 11857794 (Version 2)
Quarter: 2016Q2

REPORT INFORMATION
  Report Type: Spontaneous
  Country: US (occurrence: US)
  Receive Date: 20151221
  Receipt Date: 20160527
  Transmission Date: 20160815
  Serious: No
  Sender: FDA-Public Use
  Company Number: US-BIOGEN-2015BI00161193

PATIENT
  Age: 56 Year
  Sex: Female

DRUGS (1)
  1. PLEGRIDY [Suspect]
     Active Substance: PEGINTERFERON BETA-1A
     Indication: MULTIPLE SCLEROSIS
     Route: 058
     Dates: start: 20151121

REACTIONS (10)
  - Feeling cold [Recovered/Resolved]
  - White blood cell count decreased [Unknown]
  - Myalgia [Recovered/Resolved]
  - Influenza like illness [Unknown]
  - Fatigue [Recovered/Resolved]
  - Asthenia [Recovered/Resolved]
  - Nausea [Recovered/Resolved]
  - Chills [Recovered/Resolved]
  - Adverse reaction [Unknown]
  - Pyrexia [Recovered/Resolved]

NARRATIVE: CASE EVENT DATE: 20151206
